FAERS Safety Report 10279293 (Version 2)
Quarter: 2014Q3

REPORT INFORMATION
  Report Type: Spontaneous
  Country: CA (occurrence: CA)
  Receive Date: 20140707
  Receipt Date: 20140707
  Transmission Date: 20150326
  Serious: Yes (Other)
  Sender: FDA-Public Use
  Company Number: CA-AMGEN-CANSP2012082419

PATIENT
  Age: 77 Year
  Sex: Female
  Weight: 40.91 kg

DRUGS (10)
  1. CRESTOR [Concomitant]
     Active Substance: ROSUVASTATIN CALCIUM
     Dosage: 10 MG, UNK
  2. CALCICAL D [Concomitant]
  3. ASAPHEN [Concomitant]
     Active Substance: ASPIRIN
     Dosage: 80 MG, UNK
  4. NITRO-DUR [Concomitant]
     Active Substance: NITROGLYCERIN
     Dosage: 4 MG, UNK
  5. PANTOLOC                           /01263204/ [Concomitant]
  6. PROLIA [Suspect]
     Active Substance: DENOSUMAB
     Indication: OSTEOPOROSIS POSTMENOPAUSAL
     Dosage: 60 MG, Q6MO
     Route: 058
     Dates: start: 20121023
  7. PLAVIX [Concomitant]
     Active Substance: CLOPIDOGREL BISULFATE
  8. TIAZAC [Concomitant]
     Active Substance: DILTIAZEM HYDROCHLORIDE
  9. HUMULIN L [Concomitant]
     Active Substance: INSULIN HUMAN
  10. SYNTHROID [Concomitant]
     Active Substance: LEVOTHYROXINE SODIUM

REACTIONS (15)
  - Thyroid cancer [Unknown]
  - Fatigue [Not Recovered/Not Resolved]
  - Syncope [Unknown]
  - Weight increased [Unknown]
  - Tinea pedis [Unknown]
  - Blood pressure decreased [Unknown]
  - Myalgia [Not Recovered/Not Resolved]
  - Nasopharyngitis [Unknown]
  - Pain in extremity [Not Recovered/Not Resolved]
  - Blood glucose decreased [Unknown]
  - Fungal infection [Unknown]
  - Local swelling [Unknown]
  - Inflammation [Unknown]
  - Skin sensitisation [Not Recovered/Not Resolved]
  - Localised infection [Unknown]

NARRATIVE: CASE EVENT DATE: 2010
